FAERS Safety Report 12202957 (Version 1)
Quarter: 2016Q1

REPORT INFORMATION
  Report Type: Report from Study
  Country: AU (occurrence: AU)
  Receive Date: 20160323
  Receipt Date: 20160323
  Transmission Date: 20160526
  Serious: Yes (Hospitalization)
  Sender: FDA-Public Use
  Company Number: AU-ROCHE-1681039

PATIENT
  Age: 63 Year
  Sex: Female

DRUGS (1)
  1. ACTEMRA [Suspect]
     Active Substance: TOCILIZUMAB
     Indication: RHEUMATOID ARTHRITIS
     Route: 042
     Dates: start: 20150926

REACTIONS (3)
  - Arthralgia [Recovered/Resolved]
  - Fall [Unknown]
  - Joint dislocation [Recovered/Resolved]

NARRATIVE: CASE EVENT DATE: 20151214
